FAERS Safety Report 5463833-9 (Version None)
Quarter: 2007Q3

REPORT INFORMATION
  Report Type: 
  Country: None (occurrence: None)
  Receive Date: 20070919
  Receipt Date: 20070907
  Transmission Date: 20080115
  Serious: No
  Sender: FDA-Public Use
  Company Number: TPA2007A01892

PATIENT
  Sex: Female

DRUGS (4)
  1. ROZEREM [Suspect]
     Indication: INITIAL INSOMNIA
     Dosage: ONCE, PER ORAL; 2 DOSES, PER ORAL
     Route: 048
     Dates: start: 20070904
  2. ROZEREM [Suspect]
     Indication: MIDDLE INSOMNIA
     Dosage: ONCE, PER ORAL; 2 DOSES, PER ORAL
     Route: 048
     Dates: start: 20070904
  3. ROZEREM [Suspect]
     Indication: INITIAL INSOMNIA
     Dosage: ONCE, PER ORAL; 2 DOSES, PER ORAL
     Route: 048
     Dates: start: 20070905
  4. ROZEREM [Suspect]
     Indication: MIDDLE INSOMNIA
     Dosage: ONCE, PER ORAL; 2 DOSES, PER ORAL
     Route: 048
     Dates: start: 20070905

REACTIONS (1)
  - DRUG INEFFECTIVE [None]
